FAERS Safety Report 8462890 (Version 9)
Quarter: 2016Q3

REPORT INFORMATION
  Report Type: Spontaneous
  Country: US (occurrence: US)
  Receive Date: 20120316
  Receipt Date: 20160927
  Transmission Date: 20161109
  Serious: Yes (Death, Other)
  Sender: FDA-Public Use
  Company Number: US-SANOFI-AVENTIS-2012SA017173

PATIENT
  Age: 94 Year
  Sex: Female
  Weight: 63.5 kg

DRUGS (40)
  1. VICODIN [Concomitant]
     Active Substance: ACETAMINOPHEN\HYDROCODONE BITARTRATE
     Indication: PAIN
     Dosage: 5/500
     Route: 048
  2. HALCION [Concomitant]
     Active Substance: TRIAZOLAM
     Indication: INSOMNIA
     Dosage: QHS PRN
     Route: 048
     Dates: start: 20080224
  3. FUROSEMIDE. [Concomitant]
     Active Substance: FUROSEMIDE
     Dosage: IVP
     Dates: start: 20080226, end: 20080227
  4. LUMIGAN [Concomitant]
     Active Substance: BIMATOPROST
     Dosage: OU QHS
     Dates: start: 20080226
  5. PLAVIX [Suspect]
     Active Substance: CLOPIDOGREL BISULFATE
     Indication: TRANSIENT ISCHAEMIC ATTACK
     Route: 065
     Dates: start: 20000101, end: 20101231
  6. LIPITOR [Concomitant]
     Active Substance: ATORVASTATIN CALCIUM
     Route: 048
     Dates: start: 20080218
  7. ZETIA [Concomitant]
     Active Substance: EZETIMIBE
     Route: 048
     Dates: start: 20080218
  8. ATROPINE. [Concomitant]
     Active Substance: ATROPINE
     Dosage: 1 GTTS RIGHT EYE QHS
     Dates: start: 20080224
  9. PNEUMOVAX 23 [Concomitant]
     Active Substance: PNEUMOCOCCAL VACCINE, POLYVALENT 23
     Dosage: 0.5 CC SQ AS ORDERED.
     Dates: start: 20080225
  10. NITROGLYCERINE [Concomitant]
     Active Substance: NITROGLYCERIN
     Indication: CHEST PAIN
     Dosage: Q5MIN PRN
     Route: 060
     Dates: start: 20080224
  11. TRICOR [Concomitant]
     Active Substance: FENOFIBRATE
  12. ASPIRIN. [Suspect]
     Active Substance: ASPIRIN
     Indication: PRODUCT USED FOR UNKNOWN INDICATION
     Route: 048
     Dates: start: 20111103
  13. TRAVATAN [Concomitant]
     Active Substance: TRAVOPROST
  14. RISEDRONATE [Concomitant]
     Active Substance: RISEDRONATE SODIUM
  15. FLAGYL [Concomitant]
     Active Substance: METRONIDAZOLE\METRONIDAZOLE HYDROCHLORIDE
     Route: 048
  16. ASPIRIN. [Suspect]
     Active Substance: ASPIRIN
     Indication: PRODUCT USED FOR UNKNOWN INDICATION
     Route: 048
     Dates: start: 2000, end: 20111103
  17. VITAMIN K [Concomitant]
     Active Substance: PHYTONADIONE
     Route: 058
     Dates: start: 20080226, end: 20080229
  18. SUCRALFATE. [Concomitant]
     Active Substance: SUCRALFATE
     Route: 048
  19. PLAVIX [Suspect]
     Active Substance: CLOPIDOGREL BISULFATE
     Indication: PROPHYLAXIS
     Route: 065
     Dates: start: 20000101, end: 20101231
  20. TYLENOL [Concomitant]
     Active Substance: ACETAMINOPHEN
     Route: 048
  21. INSULIN LISPRO [Concomitant]
     Active Substance: INSULIN LISPRO
     Dosage: 0-14 UNIT, Q6H PRN
     Route: 058
     Dates: start: 20080226
  22. HUMALOG [Concomitant]
     Active Substance: INSULIN LISPRO
  23. PLAVIX [Suspect]
     Active Substance: CLOPIDOGREL BISULFATE
     Indication: HYPERTENSION
     Route: 065
     Dates: start: 20000101, end: 20101231
  24. AVAPRO [Concomitant]
     Active Substance: IRBESARTAN
     Route: 048
     Dates: start: 20080218
  25. MORPHINE [Concomitant]
     Active Substance: MORPHINE
     Indication: PAIN
     Dosage: IV PUSH
  26. HEPARIN [Concomitant]
     Active Substance: HEPARIN SODIUM
     Dosage: DOSE:5000 UNIT(S)
     Route: 058
     Dates: start: 20080225
  27. INSULIN LISPRO [Concomitant]
     Active Substance: INSULIN LISPRO
     Dosage: 2 TO 14 UNITS Q6H PRN
     Route: 058
     Dates: start: 20080225, end: 20080226
  28. NAPROSYN [Concomitant]
     Active Substance: NAPROXEN
     Indication: PAIN
     Route: 048
     Dates: start: 20080224
  29. PRED FORTE [Concomitant]
     Active Substance: PREDNISOLONE ACETATE
     Dosage: FORM: DROPS TO BOTH EYES
  30. KLONOPIN [Concomitant]
     Active Substance: CLONAZEPAM
  31. TRILIPIX [Concomitant]
     Active Substance: FENOFIBRIC ACID
     Route: 048
  32. PLAVIX [Suspect]
     Active Substance: CLOPIDOGREL BISULFATE
     Indication: CEREBROVASCULAR ACCIDENT
     Route: 065
     Dates: start: 20000101, end: 20101231
  33. ARICEPT [Concomitant]
     Active Substance: DONEPEZIL HYDROCHLORIDE
     Route: 048
     Dates: start: 20080218
  34. FENOFIBRATE. [Concomitant]
     Active Substance: FENOFIBRATE
     Dosage: BREAKFAST
     Route: 048
     Dates: start: 20080218
  35. XALATAN [Concomitant]
     Active Substance: LATANOPROST
     Dosage: 0.005%, BOTH EYES QHS
     Dates: start: 20080225
  36. PREDNISOLONE. [Concomitant]
     Active Substance: PREDNISOLONE
     Dosage: 1 % RIGTH EYE QHS
     Dates: start: 20080224
  37. ZETIA [Concomitant]
     Active Substance: EZETIMIBE
     Route: 048
  38. RESTORIL [Concomitant]
     Active Substance: TEMAZEPAM
     Indication: INSOMNIA
     Route: 048
  39. HYDROCORTISONE. [Concomitant]
     Active Substance: HYDROCORTISONE
     Dosage: LOTION; 1 APPLICATION
     Route: 061
     Dates: start: 20080226
  40. SIMVASTATIN. [Concomitant]
     Active Substance: SIMVASTATIN
     Route: 048

REACTIONS (5)
  - Death [Fatal]
  - Pain [Recovered/Resolved]
  - Haemorrhage [Unknown]
  - Ulcer haemorrhage [Unknown]
  - Gastrointestinal haemorrhage [Unknown]

NARRATIVE: CASE EVENT DATE: 2009
